FAERS Safety Report 5981877-5 (Version None)
Quarter: 2008Q4

REPORT INFORMATION
  Report Type: 
  Country: None (occurrence: None)
  Receive Date: 20081205
  Receipt Date: 20081203
  Transmission Date: 20090506
  Serious: Yes (Other)
  Sender: FDA-Public Use
  Company Number: US-GENENTECH-270146

PATIENT
  Sex: Female
  Weight: 87.528 kg

DRUGS (3)
  1. HERCEPTIN [Suspect]
     Indication: BREAST CANCER
     Dosage: 522 MG, Q3W
     Route: 042
     Dates: start: 20080611
  2. TAXOL [Concomitant]
     Indication: BREAST CANCER
     Dosage: 347 MG, Q3W
     Route: 042
     Dates: start: 20080611
  3. ATENOLOL [Concomitant]
     Indication: DRUG USE FOR UNKNOWN INDICATION
     Dosage: 50 MG, QD

REACTIONS (1)
  - BLOOD TRIGLYCERIDES INCREASED [None]
